FAERS Safety Report 12769541 (Version 3)
Quarter: 2016Q4

REPORT INFORMATION
  Report Type: Spontaneous
  Country: JP (occurrence: JP)
  Receive Date: 20160922
  Receipt Date: 20161214
  Transmission Date: 20170207
  Serious: No
  Sender: FDA-Public Use
  Company Number: JP-ROCHE-1830563

PATIENT
  Age: 84 Year
  Sex: Female
  Weight: 45 kg

DRUGS (1)
  1. BONVIVA [Suspect]
     Active Substance: IBANDRONATE SODIUM
     Indication: OSTEOPOROSIS
     Dosage: MOST RECENT DOSE ON 25/AUG/2016
     Route: 042
     Dates: start: 20160712, end: 20160825

REACTIONS (11)
  - Peripheral swelling [Unknown]
  - Malaise [Not Recovered/Not Resolved]
  - Administration site induration [Recovering/Resolving]
  - Hyperhidrosis [Not Recovered/Not Resolved]
  - Musculoskeletal stiffness [Unknown]
  - Injection site swelling [Recovered/Resolved]
  - Administration site warmth [Recovering/Resolving]
  - Administration site pain [Recovering/Resolving]
  - Malaise [Unknown]
  - Injection site extravasation [Unknown]
  - Photopsia [Not Recovered/Not Resolved]

NARRATIVE: CASE EVENT DATE: 20160829
